FAERS Safety Report 23169919 (Version 2)
Quarter: 2023Q4

REPORT INFORMATION
  Report Type: Report from Study
  Country: RU (occurrence: RU)
  Receive Date: 20231110
  Receipt Date: 20231118
  Transmission Date: 20240109
  Serious: Yes (Other)
  Sender: FDA-Public Use
  Company Number: RU-002147023-NVSC2023RU239212

PATIENT
  Age: 6 Month
  Sex: Male
  Weight: 5.8 kg

DRUGS (1)
  1. ZOLGENSMA [Suspect]
     Active Substance: ONASEMNOGENE ABEPARVOVEC-XIOI
     Indication: Spinal muscular atrophy
     Dosage: 41.3 ML, ONCE/SINGLE
     Route: 041
     Dates: start: 20230801, end: 20230801

REACTIONS (1)
  - Salmonellosis [Not Recovered/Not Resolved]

NARRATIVE: CASE EVENT DATE: 20231103
